FAERS Safety Report 18725640 (Version 1)
Quarter: 2021Q1

REPORT INFORMATION
  Report Type: Spontaneous
  Country: US (occurrence: US)
  Receive Date: 20210111
  Receipt Date: 20210111
  Transmission Date: 20210419
  Serious: Yes (Hospitalization)
  Sender: FDA-Public Use
  Company Number: US-MYLANLABS-2021M1000848

PATIENT
  Age: 59 Year
  Sex: Female

DRUGS (2)
  1. DOXORUBICIN [Suspect]
     Active Substance: DOXORUBICIN
     Indication: ENDOMETRIAL STROMAL SARCOMA
     Dosage: UNK
     Route: 065
     Dates: start: 201711
  2. OLARATUMAB [Concomitant]
     Active Substance: OLARATUMAB
     Indication: ENDOMETRIAL STROMAL SARCOMA
     Dosage: UNK
     Route: 065
     Dates: start: 201711

REACTIONS (1)
  - Pneumothorax [Recovering/Resolving]

NARRATIVE: CASE EVENT DATE: 201801
